FAERS Safety Report 20034423 (Version 1)
Quarter: 2021Q4

REPORT INFORMATION
  Report Type: Spontaneous
  Country: US (occurrence: US)
  Receive Date: 20211104
  Receipt Date: 20211104
  Transmission Date: 20220303
  Serious: No
  Sender: FDA-Public Use
  Company Number: US-PERRIGO-21US009901

PATIENT
  Sex: Female

DRUGS (1)
  1. DOXYLAMINE SUCCINATE [Suspect]
     Active Substance: DOXYLAMINE SUCCINATE
     Indication: Product used for unknown indication
     Dosage: 50 MG, SINGLE
     Route: 048
     Dates: start: 20210718, end: 20210718

REACTIONS (2)
  - Hypoaesthesia [Not Recovered/Not Resolved]
  - Incorrect dose administered [Recovered/Resolved]

NARRATIVE: CASE EVENT DATE: 20210718
